FAERS Safety Report 6819667-3 (Version None)
Quarter: 2010Q3

REPORT INFORMATION
  Report Type: 
  Country: None (occurrence: None)
  Receive Date: 20100707
  Receipt Date: 20100630
  Transmission Date: 20110219
  Serious: Yes (Death, Life-Threatening, Congenital Anomaly, Other)
  Sender: FDA-Public Use
  Company Number: IE-BRISTOL-MYERS SQUIBB COMPANY-15015480

PATIENT
  Sex: Female
  Weight: 3 kg

DRUGS (5)
  1. ATAZANAVIR [Suspect]
     Route: 064
     Dates: start: 20090416
  2. RITONAVIR [Suspect]
     Route: 064
     Dates: start: 20090416
  3. TRUVADA [Suspect]
     Dosage: 1 DF =1 TABS
     Route: 064
     Dates: start: 20090416
  4. BENZODIAZEPINE [Suspect]
  5. METHADONE [Suspect]

REACTIONS (6)
  - CEREBRAL INFARCTION [None]
  - CONVULSION [None]
  - DRUG WITHDRAWAL SYNDROME NEONATAL [None]
  - PATENT DUCTUS ARTERIOSUS [None]
  - SMALL FOR DATES BABY [None]
  - VENTRICULAR SEPTAL DEFECT [None]
